FAERS Safety Report 4522380-9 (Version None)
Quarter: 2004Q4

REPORT INFORMATION
  Report Type: 
  Country: None (occurrence: None)
  Receive Date: 20041209
  Receipt Date: 20041202
  Transmission Date: 20050328
  Serious: Yes (Other)
  Sender: FDA-Public Use
  Company Number: SE-GLAXOSMITHKLINE-B0359371A

PATIENT
  Age: 78 Year
  Sex: Male

DRUGS (5)
  1. AVANDIA [Suspect]
     Indication: DIABETES MELLITUS
     Dosage: 4MG PER DAY
     Route: 048
     Dates: start: 20030605, end: 20040203
  2. LANSOPRAZOLE [Concomitant]
     Route: 065
  3. MINIDIAB [Concomitant]
     Dosage: 5MG PER DAY
     Route: 065
  4. FUROSEMIDE [Concomitant]
     Dosage: 40MG PER DAY
     Route: 065
  5. ASPIRIN [Concomitant]
     Dosage: 75MG PER DAY
     Route: 065

REACTIONS (4)
  - ANAEMIA [None]
  - DISEASE PROGRESSION [None]
  - HAEMOGLOBIN DECREASED [None]
  - RENAL FAILURE [None]
